FAERS Safety Report 10675945 (Version 1)
Quarter: 2014Q4

REPORT INFORMATION
  Report Type: Spontaneous
  Country: US (occurrence: US)
  Receive Date: 20141225
  Receipt Date: 20141225
  Transmission Date: 20150529
  Serious: Yes (Other)
  Sender: FDA-Public Use
  Company Number: US-BRISTOL-MYERS SQUIBB COMPANY-BMS-2014-002888

PATIENT
  Sex: Male
  Weight: 83.9 kg

DRUGS (9)
  1. LOVAZA [Concomitant]
     Active Substance: OMEGA-3-ACID ETHYL ESTERS
     Dosage: UNK
  2. BYDUREON [Suspect]
     Active Substance: EXENATIDE
     Indication: BLOOD GLUCOSE INCREASED
     Dosage: 2 MG, QWK
     Route: 065
     Dates: start: 2012, end: 2013
  3. FISH OIL [Concomitant]
     Active Substance: FISH OIL
  4. VITAMIN C [Concomitant]
     Active Substance: ASCORBIC ACID
     Indication: ANTIOXIDANT THERAPY
  5. METFORMIN [Concomitant]
     Active Substance: METFORMIN HYDROCHLORIDE
     Indication: DIABETES MELLITUS
  6. B-COMPLEX                          /00003501/ [Concomitant]
     Indication: SLEEP DISORDER
  7. ASPIRIN                            /00002701/ [Concomitant]
     Active Substance: ASPIRIN
     Indication: THROMBOSIS PROPHYLAXIS
  8. MULTIVITAMIN                       /00097801/ [Concomitant]
     Active Substance: VITAMINS
  9. CRESTOR [Concomitant]
     Active Substance: ROSUVASTATIN CALCIUM

REACTIONS (1)
  - Coronary artery occlusion [Unknown]

NARRATIVE: CASE EVENT DATE: 2012
